FAERS Safety Report 15067443 (Version 3)
Quarter: 2018Q3

REPORT INFORMATION
  Report Type: Spontaneous
  Country: SK (occurrence: SK)
  Receive Date: 20180626
  Receipt Date: 20180720
  Transmission Date: 20181010
  Serious: Yes (Life-Threatening, Hospitalization, Other)
  Sender: FDA-Public Use
  Company Number: SK-PFIZER INC-2018248250

PATIENT
  Age: 53 Year
  Sex: Female
  Weight: 70 kg

DRUGS (3)
  1. SUTENT [Suspect]
     Active Substance: SUNITINIB MALATE
     Indication: METASTATIC RENAL CELL CARCINOMA
     Dosage: 50 MG, 28 DAYS/14 DAYS PAUSE
     Route: 048
     Dates: start: 20180511, end: 20180608
  2. STADAPRESS /00985301/ [Concomitant]
     Dosage: 12.5 MG, 1X/DAY (1?0?0)
  3. SUTENT [Suspect]
     Active Substance: SUNITINIB MALATE
     Indication: RENAL CELL CARCINOMA

REACTIONS (5)
  - Hypochromic anaemia [Recovered/Resolved]
  - Immune thrombocytopenic purpura [Not Recovered/Not Resolved]
  - Thrombocytopenia [Recovered/Resolved]
  - Microcytic anaemia [Recovered/Resolved]
  - Leukopenia [Recovered/Resolved]

NARRATIVE: CASE EVENT DATE: 20180608
